FAERS Safety Report 8592515-X (Version None)
Quarter: 2012Q3

REPORT INFORMATION
  Report Type: 
  Country: None (occurrence: None)
  Receive Date: 20120814
  Receipt Date: 20120808
  Transmission Date: 20120928
  Serious: Yes (Hospitalization)
  Sender: FDA-Public Use
  Company Number: PHEH2012US001538

PATIENT
  Sex: Female

DRUGS (1)
  1. GILENYA [Suspect]
     Indication: MULTIPLE SCLEROSIS
     Dosage: 0.5 MG, DAILY
     Route: 048
     Dates: start: 20111220

REACTIONS (8)
  - MUSCULAR WEAKNESS [None]
  - URINARY TRACT INFECTION [None]
  - CENTRAL NERVOUS SYSTEM LESION [None]
  - TEMPERATURE INTOLERANCE [None]
  - ANXIETY [None]
  - TREMOR [None]
  - ASTHENIA [None]
  - DEPRESSED MOOD [None]
